FAERS Safety Report 10064244 (Version 1)
Quarter: 2014Q2

REPORT INFORMATION
  Report Type: Spontaneous
  Country: US (occurrence: US)
  Receive Date: 20140408
  Receipt Date: 20140408
  Transmission Date: 20141212
  Serious: No
  Sender: FDA-Public Use
  Company Number: US-BAYER-2014-049554

PATIENT
  Age: 51 Year
  Sex: Male
  Weight: 90.7 kg

DRUGS (7)
  1. BETASERON [Suspect]
     Dosage: 0.25 MG, QOD
     Route: 058
  2. DIMETHYL FUMARATE [Suspect]
     Dosage: 240 MG, UNK
  3. BACLOFEN [Concomitant]
  4. LISINOPRIL [Concomitant]
  5. COUMADIN [Concomitant]
  6. DESMOPRESSIN [Concomitant]
  7. D3-VICOTRAT [Concomitant]
     Dosage: 2000 UNIT

REACTIONS (2)
  - Diarrhoea [Recovering/Resolving]
  - Flushing [Recovering/Resolving]
